FAERS Safety Report 5958058-4 (Version None)
Quarter: 2008Q4

REPORT INFORMATION
  Report Type: 
  Country: None (occurrence: None)
  Receive Date: 20081119
  Receipt Date: 20081114
  Transmission Date: 20090506
  Serious: Yes (Other)
  Sender: FDA-Public Use
  Company Number: A0756465A

PATIENT
  Age: 63 Year
  Sex: Male

DRUGS (3)
  1. AVODART [Suspect]
     Dosage: 1CAP PER DAY
     Route: 048
     Dates: end: 20080901
  2. ONE-A-DAY VITAMIN [Concomitant]
  3. FISH OIL [Concomitant]

REACTIONS (6)
  - ADVERSE EVENT [None]
  - ASTHENIA [None]
  - MOVEMENT DISORDER [None]
  - MUSCLE ATROPHY [None]
  - MUSCULAR WEAKNESS [None]
  - SENSATION OF HEAVINESS [None]
